FAERS Safety Report 7325621-8 (Version None)
Quarter: 2011Q1

REPORT INFORMATION
  Report Type: 
  Country: None (occurrence: None)
  Receive Date: 20110302
  Receipt Date: 20110224
  Transmission Date: 20110831
  Serious: Yes (Hospitalization, Other)
  Sender: FDA-Public Use
  Company Number: US-PFIZER INC-2010145005

PATIENT
  Sex: Male

DRUGS (1)
  1. CHANTIX [Suspect]
     Indication: SMOKING CESSATION THERAPY
     Dosage: STARTER PACK, CONTINUING MONTH PACK
     Route: 048
     Dates: start: 20081115, end: 20090109

REACTIONS (5)
  - AGGRESSION [None]
  - SUICIDAL IDEATION [None]
  - BIPOLAR DISORDER [None]
  - DEPRESSION [None]
  - ANXIETY [None]
